FAERS Safety Report 8090719-6 (Version None)
Quarter: 2012Q1

REPORT INFORMATION
  Report Type: 
  Country: None (occurrence: None)
  Receive Date: 20120124
  Receipt Date: 20120109
  Transmission Date: 20120608
  Serious: Yes (Other)
  Sender: FDA-Public Use
  Company Number: EU-2011-10240

PATIENT
  Sex: Female
  Weight: 74 kg

DRUGS (7)
  1. SIMVASTATIN [Concomitant]
  2. PHENPROCOUMON [Concomitant]
  3. BISOPROLOL [Concomitant]
  4. FOSAMAX [Concomitant]
  5. SAMSCA [Suspect]
     Dosage: 15 MG MILLIGRAM(S), DAILY DOSE, ORAL
     Route: 048
     Dates: start: 20101129
  6. RAMIPRIL [Concomitant]
  7. CHOLECALCIFEROL [Concomitant]

REACTIONS (1)
  - INSOMNIA [None]
